FAERS Safety Report 7258019-1 (Version None)
Quarter: 2011Q1

REPORT INFORMATION
  Report Type: 
  Country: None (occurrence: None)
  Receive Date: 20110129
  Receipt Date: 20100616
  Transmission Date: 20110831
  Serious: No
  Sender: FDA-Public Use
  Company Number: US-ABBOTT-10P-163-0651652-00

PATIENT
  Age: 52 Year
  Sex: Female

DRUGS (8)
  1. LISINOPRIL [Concomitant]
     Indication: PRODUCT USED FOR UNKNOWN INDICATION
     Route: 048
  2. METFORMIN [Concomitant]
     Indication: PRODUCT USED FOR UNKNOWN INDICATION
     Dosage: EVERY MORNING
     Route: 048
  3. PRILOSEC [Concomitant]
     Indication: PRODUCT USED FOR UNKNOWN INDICATION
     Dosage: EVERY MORNING
     Route: 048
  4. HUMIRA [Suspect]
     Dosage: ONE INJECTION
     Dates: start: 20100625, end: 20100625
  5. HYOSCYAMINE [Concomitant]
     Indication: PRODUCT USED FOR UNKNOWN INDICATION
     Route: 048
  6. HUMIRA [Suspect]
  7. HUMIRA [Suspect]
     Indication: CROHN'S DISEASE
     Dates: start: 20100529
  8. HUMIRA [Suspect]
     Dosage: TWO INJECTIONS
     Dates: start: 20100611, end: 20100611

REACTIONS (1)
  - DIARRHOEA [None]
